FAERS Safety Report 23381228 (Version 1)
Quarter: 2024Q1

REPORT INFORMATION
  Report Type: Other
  Country: TW (occurrence: TW)
  Receive Date: 20240109
  Receipt Date: 20240109
  Transmission Date: 20240409
  Serious: Yes (Other)
  Sender: FDA-Public Use
  Company Number: TW-ALVOGEN-2023092855

PATIENT
  Sex: Female

DRUGS (3)
  1. DOXORUBICIN [Suspect]
     Active Substance: DOXORUBICIN
     Indication: Uterine leiomyosarcoma
     Dosage: SECOND-LINE CHEMOTHERAPY CONSISTING OF DOXORUBICIN 30-40 MG/M2 ON DAY 1 OVER 2 HOURS.
     Route: 040
  2. IFOSFAMIDE [Suspect]
     Active Substance: IFOSFAMIDE
     Indication: Uterine leiomyosarcoma
     Dosage: SECOND-LINE CHEMOTHERAPY CONSISTING OF 1.2GM/M2 FROM DAYS 1-3 OVER A PERIOD OF 72 HOURS.
  3. MESNA [Concomitant]
     Active Substance: MESNA
     Indication: Uterine leiomyosarcoma
     Dosage: 1.2 GM/M2 FROM DAYS 1-3 OVER 72 HOURS

REACTIONS (1)
  - Nephropathy toxic [Unknown]
